FAERS Safety Report 10712838 (Version 1)
Quarter: 2015Q1

REPORT INFORMATION
  Report Type: Spontaneous
  Country: US (occurrence: None)
  Receive Date: 20150114
  Receipt Date: 20150114
  Transmission Date: 20150721
  Serious: Yes (Other)
  Sender: FDA-Public Use
  Company Number: None

PATIENT
  Age: 67 Year
  Sex: Female

DRUGS (12)
  1. ZOCOR [Concomitant]
     Active Substance: SIMVASTATIN
  2. DITROPAN [Concomitant]
     Active Substance: OXYBUTYNIN CHLORIDE
  3. BACLOFEN. [Concomitant]
     Active Substance: BACLOFEN
  4. MODANIFIL [Concomitant]
  5. DIAZEPAM. [Concomitant]
     Active Substance: DIAZEPAM
  6. VICODIN [Concomitant]
     Active Substance: ACETAMINOPHEN\HYDROCODONE BITARTRATE
  7. LODINE [Concomitant]
     Active Substance: ETODOLAC
  8. LISINOPRIL. [Concomitant]
     Active Substance: LISINOPRIL
  9. HUMULIN N [Concomitant]
     Active Substance: INSULIN HUMAN
  10. AMPYRA [Suspect]
     Active Substance: DALFAMPRIDINE
     Indication: MULTIPLE SCLEROSIS
     Route: 048
     Dates: start: 201006
  11. GLIPIZIDE. [Concomitant]
     Active Substance: GLIPIZIDE
  12. FLONASE [Concomitant]
     Active Substance: FLUTICASONE PROPIONATE

REACTIONS (3)
  - Urinary tract infection [None]
  - Asthenia [None]
  - Pyrexia [None]

NARRATIVE: CASE EVENT DATE: 20150106
